FAERS Safety Report 12979055 (Version 1)
Quarter: 2016Q4

REPORT INFORMATION
  Report Type: Spontaneous
  Country: GB (occurrence: GB)
  Receive Date: 20161128
  Receipt Date: 20161128
  Transmission Date: 20170207
  Serious: Yes (Life-Threatening, Hospitalization, Disabling)
  Sender: FDA-Public Use
  Company Number: GB-PFIZER INC-2016544811

PATIENT
  Age: 82 Year
  Sex: Female

DRUGS (4)
  1. IBANDRONIC ACID [Concomitant]
     Active Substance: IBANDRONIC ACID
     Dosage: UNK
  2. PROVERA [Suspect]
     Active Substance: MEDROXYPROGESTERONE ACETATE
     Indication: ENDOMETRIAL CANCER
     Dosage: 200 MG, 1X/DAY
     Route: 048
     Dates: start: 201609
  3. ADCAL D3 [Concomitant]
     Active Substance: CALCIUM CARBONATE\CHOLECALCIFEROL
     Dosage: UNK
  4. VISCOTEARS [Concomitant]
     Active Substance: CARBOMER
     Dosage: UNK

REACTIONS (4)
  - Ischaemic stroke [Not Recovered/Not Resolved]
  - Asthenia [Unknown]
  - Facial paralysis [Unknown]
  - Acute kidney injury [Recovered/Resolved]

NARRATIVE: CASE EVENT DATE: 201611
